FAERS Safety Report 5680815-2 (Version None)
Quarter: 2008Q1

REPORT INFORMATION
  Report Type: 
  Country: None (occurrence: None)
  Receive Date: 20080326
  Receipt Date: 20080324
  Transmission Date: 20080703
  Serious: Yes (Death)
  Sender: FDA-Public Use
  Company Number: ES-BOEHRINGER INGELHEIM GMBH, GERMANY-2008-BP-04518RO

PATIENT
  Age: 60 Year
  Sex: Female

DRUGS (7)
  1. CYCLOPHOSPHAMIDE [Suspect]
     Indication: FOLLICLE CENTRE LYMPHOMA, FOLLICULAR GRADE I, II, III STAGE IV
  2. FLUDARABINE [Suspect]
     Indication: FOLLICLE CENTRE LYMPHOMA, FOLLICULAR GRADE I, II, III STAGE IV
  3. RITUXIMAB [Suspect]
     Indication: FOLLICLE CENTRE LYMPHOMA, FOLLICULAR GRADE I, II, III STAGE IV
  4. IDARUBICIN HCL [Concomitant]
     Indication: ACUTE MYELOID LEUKAEMIA
  5. CYTARABINE [Concomitant]
     Indication: ACUTE MYELOID LEUKAEMIA
  6. ETOPOSIDE [Concomitant]
     Indication: ACUTE MYELOID LEUKAEMIA
  7. THIOGUANINE [Concomitant]
     Indication: PALLIATIVE CARE

REACTIONS (2)
  - ACUTE MYELOID LEUKAEMIA [None]
  - NEUTROPENIA [None]
